FAERS Safety Report 23238112 (Version 1)
Quarter: 2023Q4

REPORT INFORMATION
  Report Type: Spontaneous
  Country: US (occurrence: None)
  Receive Date: 20231129
  Receipt Date: 20231129
  Transmission Date: 20240109
  Serious: Yes (Hospitalization)
  Sender: FDA-Public Use
  Company Number: US-ROCHE-3460345

PATIENT
  Age: 5 Month
  Sex: Female

DRUGS (1)
  1. EVRYSDI [Suspect]
     Active Substance: RISDIPLAM
     Indication: Spinal muscular atrophy
     Route: 065

REACTIONS (5)
  - Viral upper respiratory tract infection [Unknown]
  - Rash [Unknown]
  - Pyrexia [Unknown]
  - Seizure [Unknown]
  - Troponin I increased [Unknown]
